FAERS Safety Report 6339362-7 (Version None)
Quarter: 2009Q3

REPORT INFORMATION
  Report Type: 
  Country: None (occurrence: None)
  Receive Date: 20090903
  Receipt Date: 20090824
  Transmission Date: 20100115
  Serious: Yes (Hospitalization)
  Sender: FDA-Public Use
  Company Number: US-ELI_LILLY_AND_COMPANY-US200908004288

PATIENT
  Sex: Male
  Weight: 64.853 kg

DRUGS (3)
  1. BYETTA [Suspect]
     Indication: TYPE 2 DIABETES MELLITUS
     Dosage: 5 UG, 2/D
     Route: 058
     Dates: start: 20070101, end: 20070101
  2. BYETTA [Suspect]
     Dosage: 10 UG, 2/D
     Route: 058
     Dates: start: 20070101
  3. GLYBURIDE [Concomitant]
     Dosage: 5 MG, OTHER

REACTIONS (5)
  - DRUG DOSE OMISSION [None]
  - HOSPITALISATION [None]
  - JOINT RANGE OF MOTION DECREASED [None]
  - PAIN [None]
  - QUALITY OF LIFE DECREASED [None]
